FAERS Safety Report 17625595 (Version 2)
Quarter: 2020Q2

REPORT INFORMATION
  Report Type: Report from Study
  Country: FR (occurrence: FR)
  Receive Date: 20200404
  Receipt Date: 20200521
  Transmission Date: 20200713
  Serious: No
  Sender: FDA-Public Use
  Company Number: FR-AUROBINDO-AUR-APL-2020-016813

PATIENT
  Age: 49 Year

DRUGS (1)
  1. BELEODAQ [Suspect]
     Active Substance: BELINOSTAT
     Indication: PERIPHERAL T-CELL LYMPHOMA UNSPECIFIED
     Dosage: 1 CYCLE
     Route: 065
     Dates: start: 20200226, end: 20200301

REACTIONS (2)
  - General physical health deterioration [Unknown]
  - Disease progression [Unknown]
